FAERS Safety Report 16810170 (Version 3)
Quarter: 2021Q3

REPORT INFORMATION
  Report Type: Spontaneous
  Country: US (occurrence: US)
  Receive Date: 20190916
  Receipt Date: 20210820
  Transmission Date: 20211014
  Serious: No
  Sender: FDA-Public Use
  Company Number: US-PFIZER INC-2019395264

PATIENT
  Age: 20 Year
  Sex: Male

DRUGS (3)
  1. GENOTROPIN [Suspect]
     Active Substance: SOMATROPIN
     Indication: SECONDARY HYPOGONADISM
     Dosage: 3.0 MG, DAILY
  2. GENOTROPIN [Suspect]
     Active Substance: SOMATROPIN
     Indication: ALPHA-1 ANTI-TRYPSIN
  3. GENOTROPIN [Suspect]
     Active Substance: SOMATROPIN
     Indication: CHARGE SYNDROME

REACTIONS (2)
  - Blood testosterone increased [Unknown]
  - Insulin-like growth factor increased [Unknown]

NARRATIVE: CASE EVENT DATE: 20190221
